FAERS Safety Report 7389007-2 (Version None)
Quarter: 2011Q2

REPORT INFORMATION
  Report Type: 
  Country: None (occurrence: None)
  Receive Date: 20110401
  Receipt Date: 20110323
  Transmission Date: 20111010
  Serious: Yes (Disabling)
  Sender: FDA-Public Use
  Company Number: NO-ASTRAZENECA-2008SE04738

PATIENT
  Age: 52 Year
  Sex: Male

DRUGS (6)
  1. SYMBICORT [Suspect]
     Dosage: 160/4.5 MCG IN THE EVENING
     Route: 055
     Dates: start: 20030101, end: 20070501
  2. SERETIDE [Concomitant]
     Indication: ASTHMA
     Dosage: 4 INHALATION X 2, 25/250
     Dates: start: 20070501
  3. SYMBICORT [Suspect]
     Indication: ASTHMA
     Dosage: 160/4.5 MCG  EVERY MORNING
     Route: 055
     Dates: start: 20030101, end: 20070501
  4. VENTOLIN [Suspect]
     Indication: ASTHMA
     Dosage: AS NEEDED
     Route: 065
     Dates: start: 20030101, end: 20070501
  5. AIROMIR [Concomitant]
     Indication: ASTHMA
     Dates: start: 20070501
  6. THEOPHYLLINE [Suspect]
     Indication: ASTHMA
     Route: 065
     Dates: start: 19990101

REACTIONS (1)
  - EPIDURAL LIPOMATOSIS [None]
